FAERS Safety Report 7433455-9 (Version None)
Quarter: 2011Q2

REPORT INFORMATION
  Report Type: 
  Country: None (occurrence: None)
  Receive Date: 20110422
  Receipt Date: 20110414
  Transmission Date: 20111010
  Serious: Yes (Hospitalization)
  Sender: FDA-Public Use
  Company Number: FR-ROCHE-771648

PATIENT
  Sex: Male
  Weight: 75 kg

DRUGS (6)
  1. ROACTEMRA [Suspect]
     Indication: RHEUMATOID ARTHRITIS
     Dosage: FORM: INFUSION
     Route: 042
     Dates: start: 20090928, end: 20101221
  2. CORTANCYL [Concomitant]
  3. METHOTREXATE [Suspect]
     Route: 048
  4. OMEPRAZOLE [Concomitant]
  5. CEBUTID [Concomitant]
  6. CORTANCYL [Suspect]
     Dosage: FOR A LONG TIME
     Route: 048

REACTIONS (3)
  - ULCERATIVE KERATITIS [None]
  - NEUROPATHY PERIPHERAL [None]
  - SUBCUTANEOUS NODULE [None]
